FAERS Safety Report 4914885-3 (Version None)
Quarter: 2006Q1

REPORT INFORMATION
  Report Type: 
  Country: None (occurrence: None)
  Receive Date: 20060217
  Receipt Date: 20060213
  Transmission Date: 20060701
  Serious: Yes (Other)
  Sender: FDA-Public Use
  Company Number: US-SP-2006-00344

PATIENT
  Sex: Female

DRUGS (1)
  1. TUBERSOL [Suspect]
     Route: 065

REACTIONS (2)
  - RASH [None]
  - WHEEZING [None]
